FAERS Safety Report 24024440 (Version 3)
Quarter: 2024Q3

REPORT INFORMATION
  Report Type: Report from Study
  Country: IT (occurrence: IT)
  Receive Date: 20240628
  Receipt Date: 20240710
  Transmission Date: 20241017
  Serious: No
  Sender: ROCHE
  Company Number: IT-ROCHE-3522719

PATIENT
  Age: 56 Year

DRUGS (1)
  1. PHESGO [Suspect]
     Active Substance: HYALURONIDASE-ZZXF\PERTUZUMAB\TRASTUZUMAB
     Indication: Breast cancer stage IV
     Dosage: PERTUZUMAB:600MG TRASTUZUMAB:600MG?ON 19/FEB/2024, THE PATIENT RECEIVED MOST RECENT DOSE OF PERTUZUM
     Route: 058
     Dates: start: 20240129

REACTIONS (1)
  - Haematoma [Not Recovered/Not Resolved]

NARRATIVE: CASE EVENT DATE: 20240219
